FAERS Safety Report 8474931-X (Version None)
Quarter: 2012Q2

REPORT INFORMATION
  Report Type: 
  Country: None (occurrence: None)
  Receive Date: 20120628
  Receipt Date: 20120619
  Transmission Date: 20120825
  Serious: Yes (Death, Hospitalization)
  Sender: FDA-Public Use
  Company Number: PHHO2008FR04742

PATIENT
  Sex: Male
  Weight: 81 kg

DRUGS (3)
  1. PHOSPHORE ALKO [Concomitant]
     Indication: BLOOD PHOSPHORUS DECREASED
     Dosage: 1 DF, QD
     Dates: start: 20061221
  2. TASIGNA [Suspect]
     Indication: CHRONIC MYELOID LEUKAEMIA
     Dosage: 800MG DAILY
     Route: 048
     Dates: start: 20060620, end: 20080701
  3. NITROGLYCERIN [Concomitant]
     Indication: ANGINA PECTORIS

REACTIONS (10)
  - OEDEMA [None]
  - PERIPHERAL ARTERIAL OCCLUSIVE DISEASE [None]
  - ARTERIOSCLEROSIS [None]
  - SKIN ULCER [None]
  - ERYTHEMA [None]
  - PAIN IN EXTREMITY [None]
  - CONCOMITANT DISEASE PROGRESSION [None]
  - INTRACRANIAL PRESSURE INCREASED [None]
  - INTERMITTENT CLAUDICATION [None]
  - BRAIN NEOPLASM [None]
